FAERS Safety Report 8260456-3 (Version None)
Quarter: 2012Q2

REPORT INFORMATION
  Report Type: 
  Country: None (occurrence: None)
  Receive Date: 20120404
  Receipt Date: 20120327
  Transmission Date: 20120825
  Serious: Yes (Hospitalization, Other)
  Sender: FDA-Public Use
  Company Number: US-MERCK-1111USA01723

PATIENT
  Age: 53 Year
  Sex: Female
  Weight: 74 kg

DRUGS (23)
  1. FOSAMAX [Suspect]
     Indication: OSTEOPOROSIS
     Route: 048
     Dates: start: 20010401
  2. ESTRACE [Concomitant]
     Route: 065
  3. ESTRADIOL [Concomitant]
     Route: 065
     Dates: start: 20020401
  4. FOSAMAX [Suspect]
     Route: 048
     Dates: end: 20010401
  5. FOSAMAX [Suspect]
     Route: 048
     Dates: end: 20010401
  6. POTASSIUM (UNSPECIFIED) [Concomitant]
     Route: 065
  7. FOSAMAX [Suspect]
     Route: 048
     Dates: start: 20000501
  8. CELEBREX [Concomitant]
     Route: 065
  9. VITAMIN D (UNSPECIFIED) [Concomitant]
     Indication: OSTEOPOROSIS
     Route: 065
  10. VITAMIN E [Concomitant]
     Route: 065
  11. CALCIUM CARBONATE [Concomitant]
     Route: 065
  12. FOSAMAX [Suspect]
     Indication: OSTEOPENIA
     Route: 048
     Dates: start: 20010401
  13. OMACOR [Concomitant]
     Indication: HYPERCHOLESTEROLAEMIA
     Route: 065
  14. LYSINE [Concomitant]
     Route: 065
  15. LIPITOR [Concomitant]
     Indication: HYPERCHOLESTEROLAEMIA
     Route: 065
  16. CALCIUM (UNSPECIFIED) [Concomitant]
     Indication: OSTEOPOROSIS
     Route: 065
  17. BOREA [Concomitant]
     Route: 065
  18. TRICOR [Concomitant]
     Indication: HYPERCHOLESTEROLAEMIA
     Route: 065
  19. ASCORBIC ACID [Concomitant]
     Route: 065
  20. FOSAMAX [Suspect]
     Route: 048
     Dates: start: 20000501
  21. PREMARIN [Concomitant]
     Route: 065
     Dates: end: 20020401
  22. PROMETRIUM [Concomitant]
     Route: 048
  23. PROGESTIN INJ [Concomitant]
     Route: 065

REACTIONS (40)
  - FEMUR FRACTURE [None]
  - LOWER EXTREMITY MASS [None]
  - UTERINE LEIOMYOMA [None]
  - CONSTIPATION [None]
  - CAPSULAR CONTRACTURE ASSOCIATED WITH BREAST IMPLANT [None]
  - SYNOVIAL CYST [None]
  - MUSCLE STRAIN [None]
  - WEIGHT INCREASED [None]
  - ANXIETY [None]
  - CATARACT [None]
  - MEDICAL DEVICE DISCOMFORT [None]
  - COLONIC POLYP [None]
  - ASTHMA [None]
  - KYPHOSIS [None]
  - HAEMORRHOIDS [None]
  - VITAMIN D DEFICIENCY [None]
  - PNEUMONIA [None]
  - MUSCLE SPASMS [None]
  - FRUSTRATION [None]
  - GROIN PAIN [None]
  - LUNG NEOPLASM [None]
  - LIMB DISCOMFORT [None]
  - URINE CALCIUM [None]
  - MENISCUS LESION [None]
  - LIGAMENT SPRAIN [None]
  - DEPRESSION [None]
  - BASAL CELL CARCINOMA [None]
  - OVERDOSE [None]
  - CARDIOVASCULAR DISORDER [None]
  - UTERINE ENLARGEMENT [None]
  - TENDONITIS [None]
  - STRESS [None]
  - OSTEOARTHRITIS [None]
  - FOOT FRACTURE [None]
  - LIVER DISORDER [None]
  - INSOMNIA [None]
  - HYPERLIPIDAEMIA [None]
  - PLEURAL FIBROSIS [None]
  - FATIGUE [None]
  - BUNION [None]
